FAERS Safety Report 5954778-6 (Version None)
Quarter: 2008Q4

REPORT INFORMATION
  Report Type: 
  Country: None (occurrence: None)
  Receive Date: 20081113
  Receipt Date: 20081105
  Transmission Date: 20090506
  Serious: Yes (Other)
  Sender: FDA-Public Use
  Company Number: 100#03#2008-05590

PATIENT
  Age: 52 Year
  Sex: Female

DRUGS (5)
  1. VENLAFAXINE HCL [Suspect]
     Indication: ANXIETY
     Dosage: 150 MG ORAL
     Route: 048
     Dates: start: 20080728, end: 20081015
  2. VENLAFAXINE HCL [Suspect]
     Indication: DEPRESSION
     Dosage: 150 MG ORAL
     Route: 048
     Dates: start: 20080728, end: 20081015
  3. BETAHISTINE (BETAHISTINE) [Concomitant]
  4. LANSOPRAZOLE [Concomitant]
  5. PROPANOLOL (PROPANOLOL) [Concomitant]

REACTIONS (3)
  - ALOPECIA [None]
  - RASH [None]
  - STRESS [None]
